FAERS Safety Report 10498690 (Version 3)
Quarter: 2015Q2

REPORT INFORMATION
  Report Type: Spontaneous
  Country: US (occurrence: US)
  Receive Date: 20141006
  Receipt Date: 20150526
  Transmission Date: 20150821
  Serious: Yes (Life-Threatening, Hospitalization)
  Sender: FDA-Public Use
  Company Number: US-BAYER-2014-147196

PATIENT
  Age: 26 Year
  Sex: Female
  Weight: 65.76 kg

DRUGS (3)
  1. MIRENA [Suspect]
     Active Substance: LEVONORGESTREL
     Indication: CONTRACEPTION
     Dosage: 20 MCG/24HR, CONT
     Route: 015
     Dates: start: 200802, end: 20130612
  2. XANAX [Concomitant]
     Active Substance: ALPRAZOLAM
     Indication: ANXIETY
     Dosage: UNK
     Dates: start: 2012
  3. NAPROSYN [Concomitant]
     Active Substance: NAPROXEN
     Indication: DYSMENORRHOEA

REACTIONS (10)
  - Injury [None]
  - Anhedonia [None]
  - Uterine perforation [None]
  - Device misuse [None]
  - General physical health deterioration [None]
  - Anxiety [None]
  - Device issue [None]
  - Abdominal pain [None]
  - Infection [None]
  - Emotional distress [None]

NARRATIVE: CASE EVENT DATE: 20121203
